FAERS Safety Report 7544044-X (Version None)
Quarter: 2011Q2

REPORT INFORMATION
  Report Type: 
  Country: None (occurrence: None)
  Receive Date: 20110613
  Receipt Date: 20050930
  Transmission Date: 20111010
  Serious: Yes (Hospitalization)
  Sender: FDA-Public Use
  Company Number: PHFR2005GB03219

PATIENT
  Sex: Female

DRUGS (2)
  1. CLOZAPINE [Suspect]
     Indication: SCHIZOPHRENIA
     Dosage: 300 MG DAILY
     Route: 065
     Dates: start: 19911010, end: 20050920
  2. CLOZAPINE [Suspect]
     Route: 065
     Dates: start: 20050927

REACTIONS (4)
  - CEREBROVASCULAR ACCIDENT [None]
  - INFECTION [None]
  - C-REACTIVE PROTEIN INCREASED [None]
  - NERVOUS SYSTEM DISORDER [None]
